FAERS Safety Report 4950146-4 (Version None)
Quarter: 2006Q1

REPORT INFORMATION
  Report Type: 
  Country: None (occurrence: None)
  Receive Date: 20060315
  Receipt Date: 20060306
  Transmission Date: 20060701
  Serious: Yes (Other)
  Sender: FDA-Public Use
  Company Number: B0415497A

PATIENT
  Age: 18 Year
  Sex: Female

DRUGS (1)
  1. AMOXIL [Suspect]

REACTIONS (2)
  - ERYTHEMA MULTIFORME [None]
  - HEPATOCELLULAR DAMAGE [None]
